FAERS Safety Report 14825567 (Version 3)
Quarter: 2018Q3

REPORT INFORMATION
  Report Type: Spontaneous
  Country: TH (occurrence: TH)
  Receive Date: 20180430
  Receipt Date: 20180704
  Transmission Date: 20181010
  Serious: Yes (Hospitalization, Other)
  Sender: FDA-Public Use
  Company Number: TH-ACCORD-066319

PATIENT
  Age: 23 Year
  Sex: Female

DRUGS (8)
  1. ACICLOVIR [Concomitant]
     Active Substance: ACYCLOVIR
     Dates: start: 2017
  2. METHYLPREDNISOLONE. [Concomitant]
     Active Substance: METHYLPREDNISOLONE
     Dates: start: 2017
  3. PREDNISOLONE. [Concomitant]
     Active Substance: PREDNISOLONE
     Dosage: 30 MG/DAY
     Dates: start: 2017
  4. CLOTRIMAZOLE. [Interacting]
     Active Substance: CLOTRIMAZOLE
     Indication: PROPHYLAXIS
     Dosage: 3 TIMES A DAY
     Dates: start: 20171204, end: 20171212
  5. BASILIXIMAB [Concomitant]
     Active Substance: BASILIXIMAB
     Dates: start: 2017
  6. SULFAMETHOXAZOLE/TRIMETHOPRIM [Concomitant]
     Dates: start: 2017
  7. MYCOPHENOLIC ACID. [Concomitant]
     Active Substance: MYCOPHENOLIC ACID
     Dosage: 1.5 G/DAY
     Dates: start: 2017
  8. TACROLIMUS. [Suspect]
     Active Substance: TACROLIMUS
     Indication: IMMUNOSUPPRESSION
     Dosage: 8 MG/DAY, TACROLIMUS TROUGH CONCENTRATION 4.6 NG/ML
     Dates: start: 20171023

REACTIONS (4)
  - Drug interaction [Unknown]
  - Drug level increased [Recovered/Resolved]
  - Back pain [Recovered/Resolved]
  - Post transplant distal limb syndrome [Recovered/Resolved]

NARRATIVE: CASE EVENT DATE: 201712
